FAERS Safety Report 16291399 (Version 2)
Quarter: 2019Q2

REPORT INFORMATION
  Report Type: Spontaneous
  Country: JP (occurrence: JP)
  Receive Date: 20190509
  Receipt Date: 20190513
  Transmission Date: 20190711
  Serious: Yes (Hospitalization, Other)
  Sender: FDA-Public Use
  Company Number: JP-PFIZER INC-2019192144

PATIENT
  Age: 75 Year
  Sex: Female

DRUGS (2)
  1. HYDROCORTISONE. [Suspect]
     Active Substance: HYDROCORTISONE
     Dosage: 25 MG, 1X/DAY (SHE STARTED TAKING 25 MG DAILY AGAINST DOCTORS^ INSTRUCTIONS)
  2. HYDROCORTISONE. [Suspect]
     Active Substance: HYDROCORTISONE
     Indication: SECONDARY ADRENOCORTICAL INSUFFICIENCY
     Dosage: 15 MG, DAILY

REACTIONS (3)
  - Disease recurrence [Recovered/Resolved]
  - Cushing^s syndrome [Recovered/Resolved]
  - Intentional product use issue [Recovered/Resolved]
